FAERS Safety Report 5900381-3 (Version None)
Quarter: 2008Q3

REPORT INFORMATION
  Report Type: 
  Country: None (occurrence: None)
  Receive Date: 20080926
  Receipt Date: 20080916
  Transmission Date: 20090109
  Serious: Yes (Other)
  Sender: FDA-Public Use
  Company Number: AU-PFIZER INC-2007100936

PATIENT
  Sex: Female
  Weight: 60 kg

DRUGS (6)
  1. LYRICA [Suspect]
     Indication: BACK PAIN
     Route: 048
     Dates: start: 20061101, end: 20071101
  2. ENDONE [Concomitant]
     Route: 048
     Dates: start: 20041101
  3. OXYCONTIN [Concomitant]
     Route: 048
     Dates: start: 20041101
  4. ACETAMINOPHEN W/ CODEINE [Concomitant]
     Route: 048
     Dates: start: 20041101
  5. ORUVAIL [Concomitant]
     Route: 048
     Dates: start: 20041101
  6. PREDNISONE [Concomitant]
     Route: 048
     Dates: start: 20060101, end: 20071001

REACTIONS (10)
  - BEDRIDDEN [None]
  - DISTURBANCE IN ATTENTION [None]
  - DIZZINESS [None]
  - FEELING ABNORMAL [None]
  - FLUID RETENTION [None]
  - MEMORY IMPAIRMENT [None]
  - OEDEMA PERIPHERAL [None]
  - VISION BLURRED [None]
  - VOMITING [None]
  - WEIGHT INCREASED [None]
